FAERS Safety Report 8284591-9 (Version None)
Quarter: 2012Q2

REPORT INFORMATION
  Report Type: 
  Country: None (occurrence: None)
  Receive Date: 20120413
  Receipt Date: 20110608
  Transmission Date: 20120825
  Serious: No
  Sender: FDA-Public Use
  Company Number: US-ASTRAZENECA-2011SE33850

PATIENT
  Age: 70 Year
  Sex: Female

DRUGS (3)
  1. DEXILANT [Concomitant]
  2. NEXIUM [Suspect]
     Route: 048
  3. PRILOSEC OTC [Suspect]
     Route: 048

REACTIONS (20)
  - CHRONIC OBSTRUCTIVE PULMONARY DISEASE [None]
  - CONSTIPATION [None]
  - ECZEMA [None]
  - GAIT DISTURBANCE [None]
  - MALAISE [None]
  - PAIN IN EXTREMITY [None]
  - SJOGREN'S SYNDROME [None]
  - ULCER [None]
  - LEUKOPENIA [None]
  - MUSCLE SPASMS [None]
  - OSTEOARTHRITIS [None]
  - NEUROPATHY PERIPHERAL [None]
  - ARTHROPATHY [None]
  - HAEMORRHAGE [None]
  - SCIATICA [None]
  - DRUG DOSE OMISSION [None]
  - RHEUMATOID ARTHRITIS [None]
  - ANKYLOSING SPONDYLITIS [None]
  - FATIGUE [None]
  - PULMONARY CONGESTION [None]
